FAERS Safety Report 15831251 (Version 1)
Quarter: 2019Q1

REPORT INFORMATION
  Report Type: Spontaneous
  Country: US (occurrence: US)
  Receive Date: 20190116
  Receipt Date: 20190116
  Transmission Date: 20190417
  Serious: Yes (Hospitalization)
  Sender: FDA-Public Use
  Company Number: US-MALLINCKRODT-T201805021

PATIENT
  Age: 87 Year
  Sex: Female

DRUGS (2)
  1. FENTANYL TRANSDERMAL SYSTEM [Suspect]
     Active Substance: FENTANYL
     Dosage: 75MCG, EVERY 3 DAYS
     Route: 062
  2. FENTANYL TRANSDERMAL SYSTEM [Suspect]
     Active Substance: FENTANYL
     Indication: BACK PAIN
     Dosage: 75 MCG, EVERY 3 DAYS
     Route: 062
     Dates: start: 2012

REACTIONS (7)
  - Product adhesion issue [Unknown]
  - Pruritus [Not Recovered/Not Resolved]
  - Product quality issue [Unknown]
  - Pneumonia [Unknown]
  - Sinusitis [Recovering/Resolving]
  - Rash [Not Recovered/Not Resolved]
  - Withdrawal syndrome [Unknown]

NARRATIVE: CASE EVENT DATE: 201812
